FAERS Safety Report 21326594 (Version 1)
Quarter: 2022Q3

REPORT INFORMATION
  Report Type: Report from Study
  Country: US (occurrence: US)
  Receive Date: 20220913
  Receipt Date: 20220913
  Transmission Date: 20221027
  Serious: Yes (Hospitalization)
  Sender: FDA-Public Use
  Company Number: US-GILEAD-2022-0597059

PATIENT
  Age: 66 Year
  Sex: Male

DRUGS (4)
  1. SOFOSBUVIR\VELPATASVIR [Suspect]
     Active Substance: SOFOSBUVIR\VELPATASVIR
     Indication: Hepatitis C
     Dosage: 1 DOSAGE FORM, QD
     Route: 048
  2. UNSPECIFIED INGREDIENT [Concomitant]
     Active Substance: UNSPECIFIED INGREDIENT
     Indication: Hepatic cancer
     Dosage: UNKNOWN
     Dates: start: 202207
  3. VITAMINS [Concomitant]
     Active Substance: VITAMINS
     Dosage: UNKNOWN
  4. PREDNISONE [Concomitant]
     Active Substance: PREDNISONE
     Dosage: UNKNOWN
     Dates: start: 20220810

REACTIONS (4)
  - Intra-abdominal fluid collection [Unknown]
  - Oxygen saturation decreased [Unknown]
  - Frequent bowel movements [Recovered/Resolved]
  - Alpha 1 foetoprotein increased [Not Recovered/Not Resolved]

NARRATIVE: CASE EVENT DATE: 20220101
